APPROVED DRUG PRODUCT: CHOLOXIN
Active Ingredient: DEXTROTHYROXINE SODIUM
Strength: 1MG
Dosage Form/Route: TABLET;ORAL
Application: N012302 | Product #005
Applicant: ABBVIE INC
Approved: Approved Prior to Jan 1, 1982 | RLD: No | RS: No | Type: DISCN